FAERS Safety Report 9373010 (Version 1)
Quarter: 2013Q2

REPORT INFORMATION
  Report Type: Report from Study
  Country: JP (occurrence: JP)
  Receive Date: 20130627
  Receipt Date: 20130627
  Transmission Date: 20140414
  Serious: Yes (Death)
  Sender: FDA-Public Use
  Company Number: JP-ABBOTT-13P-087-1110063-00

PATIENT
  Age: 87 Year
  Sex: Male

DRUGS (3)
  1. HUMIRA [Suspect]
     Indication: BEHCET^S SYNDROME
     Route: 058
  2. HUMIRA [Suspect]
     Route: 058
  3. HUMIRA [Suspect]
     Route: 058

REACTIONS (4)
  - Renal failure [Fatal]
  - Multi-organ failure [Fatal]
  - Amyloidosis [Fatal]
  - Ulcer [Recovering/Resolving]
